FAERS Safety Report 8344959-9 (Version None)
Quarter: 2012Q2

REPORT INFORMATION
  Report Type: 
  Country: None (occurrence: None)
  Receive Date: 20120508
  Receipt Date: 20120502
  Transmission Date: 20120825
  Serious: Yes (Hospitalization)
  Sender: FDA-Public Use
  Company Number: FR-MERCK-1205FRA00001

PATIENT
  Age: 86 Year
  Sex: Male

DRUGS (6)
  1. ALLOPURINOL [Concomitant]
     Indication: GOUT
     Route: 048
     Dates: start: 20080101, end: 20120124
  2. TAMSULOSIN HYDROCHLORIDE [Concomitant]
     Route: 065
     Dates: start: 20100301, end: 20120124
  3. ASPIRIN LYSINE [Concomitant]
     Route: 065
  4. JANUVIA [Suspect]
     Indication: TYPE 2 DIABETES MELLITUS
     Route: 048
     Dates: start: 20100301, end: 20120101
  5. JANUVIA [Suspect]
     Route: 048
     Dates: start: 20120217, end: 20120324
  6. INDAPAMIDE AND PERINDOPRIL ARGININE [Concomitant]
     Route: 065
     Dates: start: 20101001, end: 20120128

REACTIONS (2)
  - JAUNDICE [None]
  - CHOLESTASIS [None]
